FAERS Safety Report 9506265 (Version 1)
Quarter: 2013Q1

REPORT INFORMATION
  Report Type: Spontaneous
  Country: US (occurrence: None)
  Receive Date: 20130305
  Receipt Date: 20130305
  Transmission Date: 20140127
  Serious: Yes (Other)
  Sender: FDA-Public Use
  Company Number: 163-21880-11092439

PATIENT
  Sex: Male

DRUGS (9)
  1. REVLIMID (LENALIDOMIDE) (CAPSULES) [Suspect]
     Indication: PLASMA CELL MYELOMA
     Dosage: 7.5 MG, 1 IN 2 D, PO
     Route: 048
     Dates: start: 20101218
  2. COUMADIN (WARFARIN SODIUM) [Concomitant]
  3. NIASPAN ER (NICOTINIC ACID) [Concomitant]
  4. METOPROLOL (METOPROLOL) [Concomitant]
  5. ACYCLOVIR (ACICLOVIR) (ACICLOVIR) [Concomitant]
  6. MEPRON (ATOVAQUONE) [Concomitant]
  7. VITAMIN B12 (CYANOCOBALAMIN) [Concomitant]
  8. VITAMINS [Concomitant]
  9. MAGNESIUM (MAGNESIUM) [Concomitant]

REACTIONS (1)
  - Neuropathy peripheral [None]
